FAERS Safety Report 8293792-5 (Version None)
Quarter: 2012Q2

REPORT INFORMATION
  Report Type: 
  Country: None (occurrence: None)
  Receive Date: 20120413
  Receipt Date: 20120223
  Transmission Date: 20120825
  Serious: Yes (Hospitalization, Other)
  Sender: FDA-Public Use
  Company Number: HA12-048-AE

PATIENT
  Age: 50 Year
  Sex: Female
  Weight: 94.8018 kg

DRUGS (3)
  1. PHENYTOIN SODIUM [Suspect]
     Indication: CONVULSION
     Dosage: 4 CAPSULES A DAY, ORAL
     Route: 048
     Dates: end: 20120222
  2. ZOSYN [Suspect]
     Dosage: 100 ML/HR, Q12H, IV
     Route: 042
  3. VANCOMYCIN [Suspect]
     Dates: start: 20110103, end: 20110107

REACTIONS (26)
  - TYPE 1 DIABETES MELLITUS [None]
  - ALOPECIA [None]
  - DIABETIC NEUROPATHY [None]
  - EPILEPSY [None]
  - STEVENS-JOHNSON SYNDROME [None]
  - RENAL FAILURE CHRONIC [None]
  - HYPERTENSIVE HEART DISEASE [None]
  - PAIN IN EXTREMITY [None]
  - ANAEMIA [None]
  - NEUROPATHY PERIPHERAL [None]
  - CELLULITIS [None]
  - HAEMODIALYSIS [None]
  - ANAEMIA OF CHRONIC DISEASE [None]
  - SARCOIDOSIS [None]
  - FATIGUE [None]
  - SEPSIS [None]
  - MYOSITIS [None]
  - RASH [None]
  - CARDIAC FAILURE CONGESTIVE [None]
  - ASTHENIA [None]
  - UROSEPSIS [None]
  - URINARY TRACT INFECTION [None]
  - HYPONATRAEMIA [None]
  - FISTULA [None]
  - RED MAN SYNDROME [None]
  - DRUG HYPERSENSITIVITY [None]
